FAERS Safety Report 7699386-4 (Version None)
Quarter: 2011Q3

REPORT INFORMATION
  Report Type: 
  Country: None (occurrence: None)
  Receive Date: 20110819
  Receipt Date: 20110809
  Transmission Date: 20111222
  Serious: Yes (Life-Threatening, Hospitalization)
  Sender: FDA-Public Use
  Company Number: US-BAYER-2011-022020

PATIENT
  Age: 39 Year
  Sex: Female
  Weight: 54 kg

DRUGS (8)
  1. BENZONATATE [Concomitant]
     Dosage: DAILY DOSE 100 MG
  2. AZITHROMYCIN [Concomitant]
     Dosage: DAILY DOSE 250 MG
  3. YASMIN [Suspect]
     Indication: CONTRACEPTION
     Dosage: UNK
     Dates: start: 20030501, end: 20030601
  4. YAZ [Suspect]
     Indication: CONTRACEPTION
     Dosage: UNK
     Dates: start: 20030501, end: 20030601
  5. NSAID'S [Concomitant]
     Dosage: UNK UNK, PRN
  6. XOPENEX [Concomitant]
  7. YAZ [Suspect]
     Indication: PREMENSTRUAL SYNDROME
     Dosage: UNK
     Dates: start: 20070401, end: 20080101
  8. YASMIN [Suspect]
     Indication: PREMENSTRUAL SYNDROME
     Dosage: UNK
     Dates: start: 20070401, end: 20080101

REACTIONS (6)
  - ANXIETY [None]
  - PULMONARY EMBOLISM [None]
  - EMOTIONAL DISTRESS [None]
  - ANHEDONIA [None]
  - INJURY [None]
  - PAIN [None]
